FAERS Safety Report 11739741 (Version 1)
Quarter: 2015Q4

REPORT INFORMATION
  Report Type: Spontaneous
  Country: FR (occurrence: FR)
  Receive Date: 20151113
  Receipt Date: 20151113
  Transmission Date: 20160304
  Serious: Yes (Hospitalization)
  Sender: FDA-Public Use
  Company Number: FR-009507513-1511FRA003922

PATIENT
  Age: 30 Year
  Sex: Female

DRUGS (3)
  1. OVITRELLE [Suspect]
     Active Substance: CHORIOGONADOTROPIN ALFA
     Dosage: 1 DF (250MICROGRAM/0.5ML, QD ONCE
     Route: 058
     Dates: start: 20141119
  2. FOLLITROPIN BETA [Suspect]
     Active Substance: FOLLITROPIN
     Dosage: 1 DF (75IU/0.5ML), QD
     Route: 058
     Dates: start: 20141107, end: 20141118
  3. ORGALUTRAN [Suspect]
     Active Substance: GANIRELIX ACETATE
     Dosage: 1 DF (0.25MG/0.5ML), QD
     Route: 058
     Dates: start: 20141107, end: 20141118

REACTIONS (2)
  - Ovarian hyperstimulation syndrome [Recovered/Resolved]
  - Ascites [Recovered/Resolved]

NARRATIVE: CASE EVENT DATE: 20141204
